FAERS Safety Report 10268173 (Version 1)
Quarter: 2014Q2

REPORT INFORMATION
  Report Type: Spontaneous
  Country: US (occurrence: None)
  Receive Date: 20140626
  Receipt Date: 20140626
  Transmission Date: 20141212
  Serious: No
  Sender: FDA-Public Use
  Company Number: None

PATIENT
  Age: 37 Year
  Sex: Female

DRUGS (2)
  1. KARIVA [Suspect]
     Indication: CONTRACEPTION
     Route: 048
     Dates: start: 20140608
  2. MIRECETTE [Concomitant]

REACTIONS (3)
  - Migraine [None]
  - Nausea [None]
  - Vomiting [None]
